FAERS Safety Report 20608997 (Version 2)
Quarter: 2025Q4

REPORT INFORMATION
  Report Type: Spontaneous
  Country: CA (occurrence: CA)
  Receive Date: 20220317
  Receipt Date: 20251013
  Transmission Date: 20260118
  Serious: Yes (Hospitalization, Other)
  Sender: MYLAN
  Company Number: CA-PFIZER INC-202200394610

PATIENT
  Age: 31 Year
  Sex: Female

DRUGS (36)
  1. SERTRALINE HYDROCHLORIDE [Interacting]
     Active Substance: SERTRALINE HYDROCHLORIDE
     Indication: Product used for unknown indication
     Dosage: UNK
  2. SERTRALINE HYDROCHLORIDE [Interacting]
     Active Substance: SERTRALINE HYDROCHLORIDE
     Dosage: UNK
     Route: 065
  3. SERTRALINE HYDROCHLORIDE [Interacting]
     Active Substance: SERTRALINE HYDROCHLORIDE
     Dosage: UNK
     Route: 065
  4. SERTRALINE HYDROCHLORIDE [Interacting]
     Active Substance: SERTRALINE HYDROCHLORIDE
     Dosage: UNK
  5. SERTRALINE [Interacting]
     Active Substance: SERTRALINE HYDROCHLORIDE
     Indication: Product used for unknown indication
     Dosage: UNK
  6. SERTRALINE [Interacting]
     Active Substance: SERTRALINE HYDROCHLORIDE
     Dosage: UNK
     Route: 065
  7. SERTRALINE [Interacting]
     Active Substance: SERTRALINE HYDROCHLORIDE
     Dosage: UNK
     Route: 065
  8. SERTRALINE [Interacting]
     Active Substance: SERTRALINE HYDROCHLORIDE
     Dosage: UNK
  9. OXYCODONE HYDROCHLORIDE\OXYCODONE TEREPHTHALATE [Interacting]
     Active Substance: OXYCODONE HYDROCHLORIDE\OXYCODONE TEREPHTHALATE
     Indication: Nasal congestion
     Dosage: UNK, BID (TWICE DAILY)
     Route: 061
  10. OXYCODONE HYDROCHLORIDE\OXYCODONE TEREPHTHALATE [Interacting]
     Active Substance: OXYCODONE HYDROCHLORIDE\OXYCODONE TEREPHTHALATE
     Dosage: UNK, BID (TWICE DAILY)
  11. OXYCODONE HYDROCHLORIDE\OXYCODONE TEREPHTHALATE [Interacting]
     Active Substance: OXYCODONE HYDROCHLORIDE\OXYCODONE TEREPHTHALATE
     Dosage: UNK, BID (TWICE DAILY)
  12. OXYCODONE HYDROCHLORIDE\OXYCODONE TEREPHTHALATE [Interacting]
     Active Substance: OXYCODONE HYDROCHLORIDE\OXYCODONE TEREPHTHALATE
     Dosage: UNK, BID (TWICE DAILY)
     Route: 061
  13. OXYCODONE HYDROCHLORIDE\OXYCODONE TEREPHTHALATE [Interacting]
     Active Substance: OXYCODONE HYDROCHLORIDE\OXYCODONE TEREPHTHALATE
     Dosage: 3 DOSAGE FORM
     Route: 065
  14. OXYCODONE HYDROCHLORIDE\OXYCODONE TEREPHTHALATE [Interacting]
     Active Substance: OXYCODONE HYDROCHLORIDE\OXYCODONE TEREPHTHALATE
     Dosage: 3 DOSAGE FORM
  15. OXYCODONE HYDROCHLORIDE\OXYCODONE TEREPHTHALATE [Interacting]
     Active Substance: OXYCODONE HYDROCHLORIDE\OXYCODONE TEREPHTHALATE
     Dosage: 3 DOSAGE FORM
  16. OXYCODONE HYDROCHLORIDE\OXYCODONE TEREPHTHALATE [Interacting]
     Active Substance: OXYCODONE HYDROCHLORIDE\OXYCODONE TEREPHTHALATE
     Dosage: 3 DOSAGE FORM
     Route: 065
  17. OXYCODONE HYDROCHLORIDE\OXYCODONE TEREPHTHALATE [Interacting]
     Active Substance: OXYCODONE HYDROCHLORIDE\OXYCODONE TEREPHTHALATE
     Dosage: 3 DOSAGE FORM
     Route: 065
  18. OXYCODONE HYDROCHLORIDE\OXYCODONE TEREPHTHALATE [Interacting]
     Active Substance: OXYCODONE HYDROCHLORIDE\OXYCODONE TEREPHTHALATE
     Dosage: 3 DOSAGE FORM
     Route: 065
  19. OXYCODONE HYDROCHLORIDE\OXYCODONE TEREPHTHALATE [Interacting]
     Active Substance: OXYCODONE HYDROCHLORIDE\OXYCODONE TEREPHTHALATE
     Dosage: 3 DOSAGE FORM
  20. OXYCODONE HYDROCHLORIDE\OXYCODONE TEREPHTHALATE [Interacting]
     Active Substance: OXYCODONE HYDROCHLORIDE\OXYCODONE TEREPHTHALATE
     Dosage: 3 DOSAGE FORM
  21. Bismuth 8-hydroxyquinoline [Concomitant]
     Indication: Product used for unknown indication
     Dosage: UNK
  22. Bismuth 8-hydroxyquinoline [Concomitant]
     Dosage: UNK
     Route: 065
  23. Bismuth 8-hydroxyquinoline [Concomitant]
     Dosage: UNK
     Route: 065
  24. Bismuth 8-hydroxyquinoline [Concomitant]
     Dosage: UNK
  25. DOMPERIDONE [Concomitant]
     Active Substance: DOMPERIDONE
     Dosage: UNK
  26. DOMPERIDONE [Concomitant]
     Active Substance: DOMPERIDONE
     Dosage: UNK
     Route: 065
  27. DOMPERIDONE [Concomitant]
     Active Substance: DOMPERIDONE
     Dosage: UNK
     Route: 065
  28. DOMPERIDONE [Concomitant]
     Active Substance: DOMPERIDONE
     Dosage: UNK
  29. LANSOPRAZOLE [Concomitant]
     Active Substance: LANSOPRAZOLE
     Dosage: UNK
  30. LANSOPRAZOLE [Concomitant]
     Active Substance: LANSOPRAZOLE
     Dosage: UNK
     Route: 065
  31. LANSOPRAZOLE [Concomitant]
     Active Substance: LANSOPRAZOLE
     Dosage: UNK
     Route: 065
  32. LANSOPRAZOLE [Concomitant]
     Active Substance: LANSOPRAZOLE
     Dosage: UNK
  33. BISMUTH SALICYLATE [Concomitant]
     Active Substance: BISMUTH TRISALICYLATE
     Dosage: UNK
  34. BISMUTH SALICYLATE [Concomitant]
     Active Substance: BISMUTH TRISALICYLATE
     Dosage: UNK
     Route: 065
  35. BISMUTH SALICYLATE [Concomitant]
     Active Substance: BISMUTH TRISALICYLATE
     Dosage: UNK
     Route: 065
  36. BISMUTH SALICYLATE [Concomitant]
     Active Substance: BISMUTH TRISALICYLATE
     Dosage: UNK

REACTIONS (4)
  - Reversible cerebral vasoconstriction syndrome [Recovered/Resolved]
  - Thunderclap headache [Recovering/Resolving]
  - Cerebral vasoconstriction [Recovering/Resolving]
  - Drug interaction [Recovering/Resolving]
